FAERS Safety Report 9942179 (Version 2)
Quarter: 2014Q1

REPORT INFORMATION
  Report Type: Report from Study
  Country: PR (occurrence: PR)
  Receive Date: 20140303
  Receipt Date: 20140303
  Transmission Date: 20141002
  Serious: No
  Sender: FDA-Public Use
  Company Number: PR-ABBVIE-12P-131-0903033-00

PATIENT
  Age: 70 Year
  Sex: Female
  Weight: 64.92 kg

DRUGS (9)
  1. HUMIRA 40 MG/0.8 ML PEN [Suspect]
     Indication: RHEUMATOID ARTHRITIS
     Route: 058
     Dates: start: 200711, end: 20121107
  2. HUMIRA 40 MG/0.8 ML PEN [Suspect]
     Route: 058
     Dates: start: 20121117
  3. METHOTREXATE [Concomitant]
     Indication: RHEUMATOID ARTHRITIS
     Route: 058
     Dates: start: 200711
  4. MELOXICAM [Concomitant]
     Indication: RHEUMATOID ARTHRITIS
     Route: 048
     Dates: end: 20121108
  5. LOSARTAN [Concomitant]
     Indication: HYPERTENSION
     Dosage: 50/12.5MG DAILY
     Route: 048
     Dates: start: 201210
  6. LEVOXYL [Concomitant]
     Indication: THYROID DISORDER
     Route: 048
  7. LIPITOR [Concomitant]
     Indication: HYPERCHOLESTEROLAEMIA
     Route: 048
  8. ACIPHEX [Concomitant]
     Indication: GASTROOESOPHAGEAL REFLUX DISEASE
     Route: 048
  9. ACIPHEX [Concomitant]
     Indication: GASTRITIS

REACTIONS (1)
  - Nasopharyngitis [Recovered/Resolved]
